FAERS Safety Report 20144744 (Version 1)
Quarter: 2021Q4

REPORT INFORMATION
  Report Type: Report from Study
  Country: US (occurrence: US)
  Receive Date: 20211203
  Receipt Date: 20211203
  Transmission Date: 20220303
  Serious: Yes (Hospitalization, Other)
  Sender: FDA-Public Use
  Company Number: US-JNJFOC-20211154969

PATIENT
  Age: 48 Year
  Sex: Female

DRUGS (6)
  1. SPRAVATO [Suspect]
     Active Substance: ESKETAMINE
     Indication: Major depression
     Dosage: 56 MG, 6 TOTAL DOSES
     Dates: start: 20210615, end: 20210921
  2. SPRAVATO [Suspect]
     Active Substance: ESKETAMINE
     Dosage: 84 MG, 7 TOTAL DOSES
     Dates: start: 20210924, end: 20211116
  3. HYDROXYZINE [Concomitant]
     Active Substance: HYDROXYZINE HYDROCHLORIDE
     Indication: Major depression
     Route: 065
     Dates: start: 2011
  4. EFFEXOR [Concomitant]
     Active Substance: VENLAFAXINE HYDROCHLORIDE
     Indication: Major depression
     Route: 065
     Dates: start: 202006
  5. SEROQUEL [Concomitant]
     Active Substance: QUETIAPINE FUMARATE
     Indication: Major depression
     Route: 065
     Dates: start: 202006
  6. HALDOL [Concomitant]
     Active Substance: HALOPERIDOL
     Indication: Major depression
     Dosage: AS NEEDED
     Route: 065

REACTIONS (19)
  - Volvulus [Unknown]
  - Ulcer haemorrhage [Unknown]
  - Hallucination, synaesthetic [Unknown]
  - Pneumonia [Unknown]
  - Bedridden [Unknown]
  - Transfusion reaction [Unknown]
  - Gastrointestinal disorder [Unknown]
  - Hernia [Unknown]
  - Gastric bypass [Unknown]
  - Sleep disorder [Unknown]
  - Dissociative identity disorder [Unknown]
  - Product dose omission issue [Unknown]
  - Migraine [Unknown]
  - Weight decreased [Unknown]
  - Medication error [Unknown]
  - Diarrhoea [Unknown]
  - Dissociation [Unknown]
  - Sedation [Unknown]
  - Drug ineffective [Unknown]

NARRATIVE: CASE EVENT DATE: 20210101
